FAERS Safety Report 7215323-0 (Version None)
Quarter: 2011Q1

REPORT INFORMATION
  Report Type: 
  Country: None (occurrence: None)
  Receive Date: 20110105
  Receipt Date: 20110105
  Transmission Date: 20110831
  Serious: Yes (Life-Threatening)
  Sender: FDA-Public Use
  Company Number: None

PATIENT
  Age: 41 Year
  Sex: Female

DRUGS (1)
  1. VALPROIC ACID SYRUP [Suspect]
     Dosage: 1000MG BID PO
     Route: 048

REACTIONS (2)
  - UNRESPONSIVE TO STIMULI [None]
  - AMMONIA INCREASED [None]
